FAERS Safety Report 4959756-1 (Version None)
Quarter: 2006Q1

REPORT INFORMATION
  Report Type: 
  Country: None (occurrence: None)
  Receive Date: 20060324
  Receipt Date: 20060311
  Transmission Date: 20060701
  Serious: Yes (Other)
  Sender: FDA-Public Use
  Company Number: 2006034578

PATIENT
  Sex: Male
  Weight: 102.0593 kg

DRUGS (7)
  1. VIAGRA [Suspect]
     Indication: ERECTILE DYSFUNCTION
  2. TRAZODONE HCL [Concomitant]
  3. METHOTREXATE [Concomitant]
  4. DICLOFENAC SODIUM [Concomitant]
  5. EFFEXOR [Concomitant]
  6. TRAVATAN [Concomitant]
  7. FOLIC ACID [Concomitant]

REACTIONS (3)
  - BLOOD CHOLESTEROL INCREASED [None]
  - EJACULATION DISORDER [None]
  - KNEE ARTHROPLASTY [None]
